FAERS Safety Report 6829570-0 (Version None)
Quarter: 2010Q3

REPORT INFORMATION
  Report Type: 
  Country: None (occurrence: None)
  Receive Date: 20100709
  Receipt Date: 20070330
  Transmission Date: 20110219
  Serious: Yes (Other)
  Sender: FDA-Public Use
  Company Number: US-PFIZER INC-2007016562

PATIENT
  Sex: Male
  Weight: 106.6 kg

DRUGS (5)
  1. CHANTIX [Suspect]
     Indication: SMOKING CESSATION THERAPY
     Route: 048
     Dates: start: 20070201, end: 20070225
  2. REMERON [Interacting]
     Indication: DEPRESSION
  3. BUPRENORPHINE [Concomitant]
     Dosage: 8/2
  4. LORTAB [Concomitant]
     Dosage: 10/500
  5. KLONOPIN [Concomitant]

REACTIONS (7)
  - DISCOMFORT [None]
  - DRUG INTERACTION [None]
  - EATING DISORDER [None]
  - IMPAIRED WORK ABILITY [None]
  - MENTAL IMPAIRMENT [None]
  - NAUSEA [None]
  - OEDEMA PERIPHERAL [None]
